FAERS Safety Report 9290324 (Version 3)
Quarter: 2013Q3

REPORT INFORMATION
  Report Type: Spontaneous
  Country: US (occurrence: US)
  Receive Date: 20130515
  Receipt Date: 20130829
  Transmission Date: 20140515
  Serious: No
  Sender: FDA-Public Use
  Company Number: US-PFIZER INC-2013146695

PATIENT
  Age: 74 Year
  Sex: Female

DRUGS (2)
  1. XELJANZ [Suspect]
     Indication: RHEUMATOID ARTHRITIS
     Dosage: 5 MG, 2X/DAY
     Dates: start: 201303
  2. XELJANZ [Suspect]
     Dosage: 5 MG, 2X/DAY
     Dates: start: 20130503, end: 20130819

REACTIONS (2)
  - Oral pain [Unknown]
  - Herpes zoster [Recovering/Resolving]
